FAERS Safety Report 21960370 (Version 6)
Quarter: 2023Q1

REPORT INFORMATION
  Report Type: Spontaneous
  Country: US (occurrence: US)
  Receive Date: 20230207
  Receipt Date: 20230323
  Transmission Date: 20230418
  Serious: No
  Sender: FDA-Public Use
  Company Number: US-GLAXOSMITHKLINE-US2023AMR015711

PATIENT
  Sex: Female

DRUGS (3)
  1. ZEJULA [Suspect]
     Active Substance: NIRAPARIB
     Indication: Ovarian cancer
     Dosage: 200 MG, QD
  2. MENTHOL [Suspect]
     Active Substance: MENTHOL
     Indication: Pain
     Dosage: UNK
  3. AVASTIN [Concomitant]
     Active Substance: BEVACIZUMAB
     Indication: Ovarian cancer
     Dosage: UNK, INFUSION EVERY 3 WEEKS

REACTIONS (17)
  - Muscle discomfort [Recovering/Resolving]
  - Blood pressure increased [Unknown]
  - Myalgia [Unknown]
  - Fatigue [Unknown]
  - Muscular weakness [Unknown]
  - Headache [Unknown]
  - Rash [Unknown]
  - Secretion discharge [Unknown]
  - Cough [Not Recovered/Not Resolved]
  - Nasal dryness [Unknown]
  - Pain [Unknown]
  - Neck pain [Unknown]
  - Drainage [Not Recovered/Not Resolved]
  - Dyspnoea [Unknown]
  - Multiple allergies [Unknown]
  - Productive cough [Unknown]
  - Product dose omission issue [Unknown]

NARRATIVE: CASE EVENT DATE: 20230101
